FAERS Safety Report 12110611 (Version 1)
Quarter: 2016Q1

REPORT INFORMATION
  Report Type: Spontaneous
  Country: US (occurrence: US)
  Receive Date: 20160224
  Receipt Date: 20160224
  Transmission Date: 20160526
  Serious: Yes (Hospitalization)
  Sender: FDA-Public Use
  Company Number: US-HORIZON-VIM-0030-2016

PATIENT
  Age: 25 Year
  Sex: Male
  Weight: 150.6 kg

DRUGS (2)
  1. LESINURAD [Suspect]
     Active Substance: LESINURAD
     Indication: GOUT
     Dosage: 400 MG ONCE DAILY
     Route: 048
     Dates: start: 20130419, end: 20130420
  2. VIMOVO [Suspect]
     Active Substance: ESOMEPRAZOLE MAGNESIUM\NAPROXEN
     Indication: GOUT
     Dosage: 375 MG BID UNTIL 17-APR-2013; THEN 375 MG/D
     Route: 048
     Dates: start: 20130404, end: 20130420

REACTIONS (1)
  - Acute kidney injury [Recovered/Resolved]

NARRATIVE: CASE EVENT DATE: 20130423
